FAERS Safety Report 7515096-8 (Version None)
Quarter: 2011Q2

REPORT INFORMATION
  Report Type: 
  Country: None (occurrence: None)
  Receive Date: 20110601
  Receipt Date: 20090930
  Transmission Date: 20111010
  Serious: Yes (Other)
  Sender: FDA-Public Use
  Company Number: US-BAYER-2011-007120

PATIENT
  Age: 44 Year
  Sex: Male
  Weight: 90.703 kg

DRUGS (7)
  1. VANCOMYCIN [Concomitant]
     Dosage: 1 GRAM
     Route: 042
     Dates: start: 20040313, end: 20040313
  2. TRASYLOL [Suspect]
     Indication: AORTIC DISSECTION
     Dosage: LOADING DOSE (AMICAR 20L, PUMP PRIME DOSE 5MG/HR INFUSION)
     Route: 042
     Dates: start: 20040313, end: 20040313
  3. MORPHINE [Concomitant]
     Dosage: 5MG X 3
     Route: 042
     Dates: start: 20040313, end: 20040313
  4. RED BLOOD CELLS [Concomitant]
     Dosage: UNK
     Dates: start: 20040313
  5. PLATELETS [Concomitant]
     Dosage: UNK
     Dates: start: 20040313
  6. PLASMA [Concomitant]
     Dosage: UNK
     Dates: start: 20040313
  7. AMICAR [Concomitant]
     Dosage: 20
     Route: 042
     Dates: start: 20040313, end: 20040313

REACTIONS (14)
  - PAIN [None]
  - DEPRESSION [None]
  - ANHEDONIA [None]
  - EMOTIONAL DISTRESS [None]
  - NERVOUSNESS [None]
  - UNEVALUABLE EVENT [None]
  - PSYCHIATRIC SYMPTOM [None]
  - ANXIETY [None]
  - FEAR [None]
  - FEAR OF DEATH [None]
  - INJURY [None]
  - RENAL FAILURE [None]
  - MULTI-ORGAN FAILURE [None]
  - RENAL INJURY [None]
